FAERS Safety Report 8960929 (Version 5)
Quarter: 2013Q1

REPORT INFORMATION
  Report Type: Spontaneous
  Country: JP (occurrence: JP)
  Receive Date: 20121213
  Receipt Date: 20130129
  Transmission Date: 20140127
  Serious: Yes (Death, Life-Threatening, Hospitalization, Other)
  Sender: FDA-Public Use
  Company Number: JP-B.I. PHARMACEUTICALS,INC./RIDGEFIELD-2012-BI-02748NB

PATIENT
  Age: 77 Year
  Sex: Male
  Weight: 56 kg

DRUGS (11)
  1. PRAZAXA [Suspect]
     Indication: ATRIAL FIBRILLATION
     Dosage: 220 MG
     Route: 048
     Dates: start: 20121015, end: 20121121
  2. NEXIUM [Suspect]
     Indication: GASTROOESOPHAGEAL REFLUX DISEASE
     Dosage: 10 MG
     Route: 048
     Dates: start: 20121115, end: 20121121
  3. ERYTHROCIN [Concomitant]
     Indication: CHRONIC OBSTRUCTIVE PULMONARY DISEASE
     Dosage: 300 MG
     Route: 048
     Dates: end: 20121130
  4. MUCODYNE [Concomitant]
     Indication: CHRONIC OBSTRUCTIVE PULMONARY DISEASE
     Dosage: 1500 MG
     Route: 048
     Dates: end: 20121130
  5. MAGLAX [Concomitant]
     Indication: GASTRITIS
     Dosage: 990 MG
     Route: 048
     Dates: end: 20121130
  6. LANIRAPID [Concomitant]
     Indication: ATRIAL FIBRILLATION
     Dosage: 0.1 G
     Route: 048
     Dates: end: 20121130
  7. DAIKENCHUTO [Concomitant]
     Indication: DECREASED APPETITE
     Route: 048
     Dates: end: 20121130
  8. HOKUNALIN:TAPE [Concomitant]
     Indication: CHRONIC OBSTRUCTIVE PULMONARY DISEASE
     Dosage: 2 MG
     Route: 062
     Dates: end: 20121130
  9. SPIRIVA [Concomitant]
     Indication: CHRONIC OBSTRUCTIVE PULMONARY DISEASE
     Dosage: 18 MCG
     Route: 055
     Dates: end: 20121130
  10. THEODUR [Concomitant]
     Route: 065
  11. AMLODIN [Concomitant]
     Indication: HYPERTENSION
     Route: 048

REACTIONS (6)
  - Cardiac failure [Fatal]
  - Haemoptysis [Fatal]
  - Interstitial lung disease [Fatal]
  - Respiratory failure [Fatal]
  - Thoracotomy [Recovered/Resolved]
  - Pleural effusion [Unknown]
